FAERS Safety Report 6723448-9 (Version None)
Quarter: 2010Q2

REPORT INFORMATION
  Report Type: 
  Country: None (occurrence: None)
  Receive Date: 20100513
  Receipt Date: 20100510
  Transmission Date: 20101027
  Serious: Yes (Death, Other)
  Sender: FDA-Public Use
  Company Number: PHHY2010AR30056

PATIENT
  Sex: Male

DRUGS (1)
  1. EXELON [Suspect]
     Route: 062

REACTIONS (2)
  - DEATH [None]
  - MALAISE [None]
